FAERS Safety Report 26006150 (Version 1)
Quarter: 2025Q4

REPORT INFORMATION
  Report Type: Spontaneous
  Country: US (occurrence: None)
  Receive Date: 20251105
  Receipt Date: 20251105
  Transmission Date: 20260118
  Serious: Yes (Hospitalization)
  Sender: FDA-CTU
  Company Number: None

PATIENT
  Sex: Female

DRUGS (1)
  1. CREON [Suspect]
     Active Substance: PANCRELIPASE AMYLASE\PANCRELIPASE LIPASE\PANCRELIPASE PROTEASE
     Indication: Pancreatic failure
     Dosage: 36000 IU INTERNATIONAL UNIT(S)  5 TIMES DAILY ORAL ?
     Route: 048
     Dates: start: 20250217

REACTIONS (5)
  - Diarrhoea [None]
  - Blood glucose decreased [None]
  - Depression [None]
  - Urinary tract infection [None]
  - Treatment noncompliance [None]
